FAERS Safety Report 7593894-2 (Version None)
Quarter: 2011Q3

REPORT INFORMATION
  Report Type: 
  Country: None (occurrence: None)
  Receive Date: 20110706
  Receipt Date: 20110627
  Transmission Date: 20111222
  Serious: Yes (Other)
  Sender: FDA-Public Use
  Company Number: PHHY2011FR57870

PATIENT
  Sex: Male

DRUGS (3)
  1. HYDREA [Concomitant]
     Dosage: 500 MG, UNK
     Dates: start: 20101104, end: 20101112
  2. TASIGNA [Suspect]
     Indication: CHRONIC MYELOID LEUKAEMIA
     Dosage: 600 MG, QD
     Route: 048
     Dates: start: 20101101, end: 20110501
  3. MOTILIUM [Concomitant]
     Dosage: 10 MG, TID
     Dates: start: 20100101

REACTIONS (1)
  - KARYOTYPE ANALYSIS ABNORMAL [None]
